FAERS Safety Report 9176252 (Version 1)
Quarter: 2013Q1

REPORT INFORMATION
  Report Type: Spontaneous
  Country: US (occurrence: US)
  Receive Date: 20130321
  Receipt Date: 20130321
  Transmission Date: 20140127
  Serious: No
  Sender: FDA-Public Use
  Company Number: US-BIOGENIDEC-2013BI024557

PATIENT
  Age: 47 None
  Sex: Female

DRUGS (2)
  1. AVONEX [Suspect]
     Indication: MULTIPLE SCLEROSIS
     Route: 030
     Dates: start: 20121027
  2. AVONEX [Suspect]
     Indication: MULTIPLE SCLEROSIS
     Route: 030
     Dates: start: 201302

REACTIONS (4)
  - Visual impairment [Recovered/Resolved]
  - Phobia [Not Recovered/Not Resolved]
  - Blindness [Recovered/Resolved]
  - Influenza like illness [Not Recovered/Not Resolved]
